FAERS Safety Report 9258729 (Version 2)
Quarter: 2013Q2

REPORT INFORMATION
  Report Type: Spontaneous
  Country: US (occurrence: US)
  Receive Date: 20130426
  Receipt Date: 20130531
  Transmission Date: 20140414
  Serious: No
  Sender: FDA-Public Use
  Company Number: US-PFIZER INC-2013128477

PATIENT
  Age: 93 Year
  Sex: Female
  Weight: 58.05 kg

DRUGS (3)
  1. TOVIAZ [Suspect]
     Indication: BLADDER DISORDER
     Dosage: ONE TABLET EACH MORNING
     Dates: start: 20130420
  2. DILTIAZEM HYDROCHLORIDE [Suspect]
     Indication: BLOOD PRESSURE ABNORMAL
     Dosage: UNK
  3. VICODIN [Suspect]
     Indication: MUSCLE RUPTURE
     Dosage: UNK
     Dates: start: 2013

REACTIONS (3)
  - Lip dry [Recovered/Resolved]
  - Dry mouth [Recovered/Resolved]
  - Increased upper airway secretion [Recovered/Resolved]
